FAERS Safety Report 25177563 (Version 2)
Quarter: 2025Q2

REPORT INFORMATION
  Report Type: Spontaneous
  Country: ES (occurrence: ES)
  Receive Date: 20250409
  Receipt Date: 20250424
  Transmission Date: 20250716
  Serious: Yes (Hospitalization, Other)
  Sender: MACLEODS
  Company Number: ES-MACLEODS PHARMA-MAC2025052486

PATIENT

DRUGS (6)
  1. OLANZAPINE [Suspect]
     Active Substance: OLANZAPINE
     Indication: Psychotic disorder
     Dosage: ESCALATING OLANZAPINE REGIMEN REACHING A DOSE OF 30 MG/D
     Route: 065
     Dates: start: 202207, end: 202207
  2. ZUCLOPENTHIXOL [Concomitant]
     Active Substance: ZUCLOPENTHIXOL
     Route: 065
  3. LURASIDONE [Concomitant]
     Active Substance: LURASIDONE
     Route: 065
     Dates: start: 202302
  4. LURASIDONE [Concomitant]
     Active Substance: LURASIDONE
     Route: 065
     Dates: start: 202306
  5. ZUCLOPENTHIXOL [Concomitant]
     Active Substance: ZUCLOPENTHIXOL
     Route: 065
     Dates: start: 202302
  6. ARIPIPRAZOLE [Concomitant]
     Active Substance: ARIPIPRAZOLE
     Route: 065
     Dates: start: 202306

REACTIONS (6)
  - Bicytopenia [Recovered/Resolved]
  - Disease recurrence [Recovered/Resolved]
  - Haemolytic anaemia [Recovering/Resolving]
  - Leukopenia [Unknown]
  - Condition aggravated [Unknown]
  - Neutropenia [Recovering/Resolving]

NARRATIVE: CASE EVENT DATE: 20220701
